FAERS Safety Report 5877908-3 (Version None)
Quarter: 2008Q3

REPORT INFORMATION
  Report Type: 
  Country: None (occurrence: None)
  Receive Date: 20080911
  Receipt Date: 20080908
  Transmission Date: 20090109
  Serious: Yes (Other)
  Sender: FDA-Public Use
  Company Number: A0746310A

PATIENT
  Age: 35 Year
  Sex: Female

DRUGS (2)
  1. EPZICOM [Suspect]
     Indication: HIV INFECTION
     Route: 048
     Dates: start: 20080801
  2. REYATAZ [Concomitant]

REACTIONS (3)
  - OCULAR ICTERUS [None]
  - RASH [None]
  - STOMATITIS [None]
